FAERS Safety Report 11800697 (Version 1)
Quarter: 2015Q4

REPORT INFORMATION
  Report Type: Other
  Country: GB (occurrence: GB)
  Receive Date: 20151204
  Receipt Date: 20151204
  Transmission Date: 20160305
  Serious: Yes (Other)
  Sender: FDA-Public Use
  Company Number: GB-ORCHID HEALTHCARE-1045039

PATIENT
  Age: 54 Year
  Sex: Male

DRUGS (2)
  1. CIPROFLOXACIN. [Concomitant]
     Active Substance: CIPROFLOXACIN
     Route: 065
  2. IBANDRONATE SODIUM. [Suspect]
     Active Substance: IBANDRONATE SODIUM
     Route: 065

REACTIONS (16)
  - Tendonitis [Unknown]
  - Body mass index increased [Unknown]
  - Glucose tolerance impaired [Unknown]
  - Quality of life decreased [Unknown]
  - Hypercholesterolaemia [Unknown]
  - Asthenia [Unknown]
  - Foot fracture [Unknown]
  - Atypical fracture [Unknown]
  - Forced expiratory volume decreased [Unknown]
  - Acute respiratory failure [Unknown]
  - Pancreatic insufficiency [Unknown]
  - Hypertension [Unknown]
  - Fall [Unknown]
  - Sleep apnoea syndrome [Unknown]
  - Bacterial disease carrier [Unknown]
  - Groin pain [Unknown]
